FAERS Safety Report 23448899 (Version 1)
Quarter: 2024Q1

REPORT INFORMATION
  Report Type: Spontaneous
  Country: CN (occurrence: CN)
  Receive Date: 20240128
  Receipt Date: 20240128
  Transmission Date: 20240410
  Serious: Yes (Hospitalization, Other)
  Sender: FDA-Public Use
  Company Number: CN-002147023-NVSC2024CN016006

PATIENT
  Age: 34 Year
  Sex: Female
  Weight: 62.5 kg

DRUGS (3)
  1. CYCLOSPORINE [Suspect]
     Active Substance: CYCLOSPORINE
     Indication: Systemic lupus erythematosus
     Dosage: 50MG MORNING 25MG AFTERNOON, BID
     Route: 048
     Dates: start: 20231128, end: 20231130
  2. CEFTRIAXONE SODIUM [Suspect]
     Active Substance: CEFTRIAXONE SODIUM
     Indication: Urinary tract infection
     Dosage: 1 G, QD
     Route: 041
     Dates: start: 20231202, end: 20231211
  3. SODIUM CHLORIDE [Concomitant]
     Active Substance: SODIUM CHLORIDE
     Indication: Vehicle solution use
     Dosage: 100 ML, QD
     Route: 041

REACTIONS (5)
  - Hepatic function abnormal [Recovering/Resolving]
  - Urinary tract infection [Unknown]
  - Blood pressure increased [Unknown]
  - Migraine [Unknown]
  - Off label use [Unknown]

NARRATIVE: CASE EVENT DATE: 20231220
